FAERS Safety Report 16350586 (Version 1)
Quarter: 2019Q2

REPORT INFORMATION
  Report Type: Spontaneous
  Country: DE (occurrence: DE)
  Receive Date: 20190524
  Receipt Date: 20190524
  Transmission Date: 20190711
  Serious: Yes (Other)
  Sender: FDA-Public Use
  Company Number: DE-009507513-1905DEU010142

PATIENT
  Sex: Female
  Weight: 81 kg

DRUGS (1)
  1. VELMETIA [Suspect]
     Active Substance: METFORMIN\SITAGLIPTIN
     Dosage: 2 TABLETS DAILY
     Route: 048

REACTIONS (2)
  - Liver injury [Unknown]
  - Weight increased [Unknown]
